FAERS Safety Report 13306304 (Version 1)
Quarter: 2017Q1

REPORT INFORMATION
  Report Type: Spontaneous
  Country: US (occurrence: US)
  Receive Date: 20170308
  Receipt Date: 20170308
  Transmission Date: 20170428
  Serious: No
  Sender: FDA-Public Use
  Company Number: US-009507513-1703USA002386

PATIENT
  Age: 22 Year
  Sex: Female

DRUGS (2)
  1. NEXPLANON [Suspect]
     Active Substance: ETONOGESTREL
     Dosage: 1 IMPLANT, EVERY 3 YEARS
     Route: 059
     Dates: start: 20170119, end: 20170227
  2. NEXPLANON [Suspect]
     Active Substance: ETONOGESTREL
     Dosage: 1 IMPLANT, EVERY 3 YEARS
     Route: 059
     Dates: start: 2017

REACTIONS (2)
  - Device kink [Recovered/Resolved]
  - Implant site pain [Recovered/Resolved]

NARRATIVE: CASE EVENT DATE: 2017
